FAERS Safety Report 15939960 (Version 2)
Quarter: 2019Q1

REPORT INFORMATION
  Report Type: Spontaneous
  Country: US (occurrence: US)
  Receive Date: 20190208
  Receipt Date: 20190215
  Transmission Date: 20190417
  Serious: Yes (Other)
  Sender: FDA-Public Use
  Company Number: US-ASTRAZENECA-2019SE11621

PATIENT
  Age: 18834 Day
  Sex: Female

DRUGS (6)
  1. NEXIUM [Suspect]
     Active Substance: ESOMEPRAZOLE MAGNESIUM
     Route: 048
     Dates: start: 2010, end: 2016
  2. PROMETHAZINE [Concomitant]
     Active Substance: PROMETHAZINE\PROMETHAZINE HYDROCHLORIDE
  3. PRILOSEC [Suspect]
     Active Substance: OMEPRAZOLE MAGNESIUM
     Route: 048
     Dates: start: 2001, end: 2012
  4. METHYLPREDNISOLONE. [Concomitant]
     Active Substance: METHYLPREDNISOLONE
  5. NAPROXEN. [Concomitant]
     Active Substance: NAPROXEN
  6. CYANOCOBALAMIN. [Concomitant]
     Active Substance: CYANOCOBALAMIN

REACTIONS (5)
  - Renal failure [Unknown]
  - Chronic kidney disease [Unknown]
  - Tubulointerstitial nephritis [Unknown]
  - Renal injury [Unknown]
  - Rebound acid hypersecretion [Unknown]

NARRATIVE: CASE EVENT DATE: 20120218
